FAERS Safety Report 4309537-7 (Version None)
Quarter: 2004Q1

REPORT INFORMATION
  Report Type: 
  Country: None (occurrence: None)
  Receive Date: 20040301
  Receipt Date: 20040220
  Transmission Date: 20041129
  Serious: Yes (Life-Threatening)
  Sender: FDA-Public Use
  Company Number: FR-JNJFOC-20040204788

PATIENT
  Age: 81 Year
  Sex: Male

DRUGS (5)
  1. REMINYL [Suspect]
     Indication: DEMENTIA ALZHEIMER'S TYPE
     Dosage: 8 MG, 2 IN 1 DAY, ORAL
     Route: 048
     Dates: start: 20040119, end: 20040130
  2. RISPERDAL [Suspect]
     Dosage: 1.5 MG, ORAL
     Route: 048
     Dates: start: 20040120, end: 20040129
  3. METOPROLOL TARTRATE [Suspect]
     Dosage: 50 MG, ORAL
     Route: 048
     Dates: start: 20040119, end: 20040129
  4. MEMANTINE HCL [Concomitant]
  5. EQUANIL [Concomitant]

REACTIONS (3)
  - BRADYARRHYTHMIA [None]
  - DRUG INTERACTION [None]
  - MALAISE [None]
